FAERS Safety Report 5397258-1 (Version None)
Quarter: 2007Q3

REPORT INFORMATION
  Report Type: 
  Country: None (occurrence: None)
  Receive Date: 20070725
  Receipt Date: 20070713
  Transmission Date: 20080115
  Serious: Yes (Other)
  Sender: FDA-Public Use
  Company Number: GB-PFIZER INC-2007059631

PATIENT
  Age: 75 Year
  Sex: Female

DRUGS (1)
  1. CHAMPIX [Suspect]
     Indication: SMOKING CESSATION THERAPY
     Route: 048

REACTIONS (5)
  - DIZZINESS [None]
  - FEELING ABNORMAL [None]
  - MOBILITY DECREASED [None]
  - NAUSEA [None]
  - TRANSIENT ISCHAEMIC ATTACK [None]
